FAERS Safety Report 6932601-0 (Version None)
Quarter: 2010Q3

REPORT INFORMATION
  Report Type: 
  Country: None (occurrence: None)
  Receive Date: 20100817
  Receipt Date: 20100805
  Transmission Date: 20110219
  Serious: Yes (Death, Life-Threatening, Hospitalization, Other)
  Sender: FDA-Public Use
  Company Number: 2010AC000351

PATIENT
  Age: 72 Year
  Sex: Female

DRUGS (20)
  1. DIGOXIN [Suspect]
     Dosage: PO
     Route: 048
     Dates: start: 20060401, end: 20080601
  2. DIGOXIN [Suspect]
     Dosage: 0.250 MG; QD; PO
     Route: 048
     Dates: start: 20060401, end: 20080509
  3. ALBUTEROL SULATE [Concomitant]
  4. PRINIVIL [Concomitant]
  5. COUMADIN [Concomitant]
  6. NORVASC [Concomitant]
  7. SENNA-S [Concomitant]
  8. LASIX [Concomitant]
  9. PRILOSEC [Concomitant]
  10. XANAX [Concomitant]
  11. VICODIN [Concomitant]
  12. TRAZODONE HCL [Concomitant]
  13. PROZAC [Concomitant]
  14. ACETAMINOPHEN [Concomitant]
  15. FENTANYL CITRATE [Concomitant]
  16. ORAMORPH SR [Concomitant]
  17. DILTIAZEM [Concomitant]
  18. EVISTA [Concomitant]
  19. PROMETHAZINE [Concomitant]
  20. OXYCODONE [Concomitant]

REACTIONS (50)
  - ABDOMINAL PAIN UPPER [None]
  - ARTERIOSCLEROSIS [None]
  - ASTHENIA [None]
  - ASTHMA [None]
  - ATELECTASIS [None]
  - ATRIAL FIBRILLATION [None]
  - ATRIOVENTRICULAR BLOCK FIRST DEGREE [None]
  - BACK PAIN [None]
  - BALANCE DISORDER [None]
  - CARDIAC FAILURE [None]
  - CARDIOACTIVE DRUG LEVEL INCREASED [None]
  - COLON ADENOMA [None]
  - COMPRESSION FRACTURE [None]
  - CONDITION AGGRAVATED [None]
  - CONFUSIONAL STATE [None]
  - CORONARY ARTERY STENOSIS [None]
  - DECREASED APPETITE [None]
  - DEPRESSION [None]
  - DRUG LEVEL DECREASED [None]
  - DYSPNOEA [None]
  - ECONOMIC PROBLEM [None]
  - ELECTROCARDIOGRAM ST-T SEGMENT ABNORMAL [None]
  - EXERCISE TOLERANCE DECREASED [None]
  - FALL [None]
  - FATIGUE [None]
  - FLUID OVERLOAD [None]
  - HYPERKALAEMIA [None]
  - INFLUENZA [None]
  - INJURY [None]
  - INSOMNIA [None]
  - INTERNATIONAL NORMALISED RATIO INCREASED [None]
  - MALAISE [None]
  - MITRAL VALVE INCOMPETENCE [None]
  - MITRAL VALVE REPAIR [None]
  - MUSCLE STRAIN [None]
  - MUSCULOSKELETAL CHEST PAIN [None]
  - NAUSEA [None]
  - NODAL ARRHYTHMIA [None]
  - PAIN [None]
  - PNEUMONIA [None]
  - PRODUCT QUALITY ISSUE [None]
  - RECTAL HAEMORRHAGE [None]
  - RENAL FAILURE ACUTE [None]
  - RENAL FAILURE CHRONIC [None]
  - RESTLESS LEGS SYNDROME [None]
  - SOMNOLENCE [None]
  - SPEECH DISORDER [None]
  - THORACIC VERTEBRAL FRACTURE [None]
  - TREMOR [None]
  - VOMITING [None]
